FAERS Safety Report 5025122-6 (Version None)
Quarter: 2006Q2

REPORT INFORMATION
  Report Type: 
  Country: None (occurrence: None)
  Receive Date: 20060607
  Receipt Date: 20060605
  Transmission Date: 20061013
  Serious: Yes (Death)
  Sender: FDA-Public Use
  Company Number: PHO-2006-013-F-UP 1

PATIENT

DRUGS (1)
  1. PHOTOFRIN [Suspect]
     Indication: METASTATIC NEOPLASM
     Dosage: 2.5 MG/KG IV
     Route: 042
     Dates: start: 19970201, end: 20040301

REACTIONS (2)
  - MYOCARDIAL INFARCTION [None]
  - POST PROCEDURAL COMPLICATION [None]
